FAERS Safety Report 12764238 (Version 4)
Quarter: 2017Q1

REPORT INFORMATION
  Report Type: Spontaneous
  Country: GB (occurrence: GB)
  Receive Date: 20160920
  Receipt Date: 20170106
  Transmission Date: 20170428
  Serious: Yes (Death, Hospitalization)
  Sender: FDA-Public Use
  Company Number: GB-TEVA-692693ACC

PATIENT
  Age: 57 Year
  Sex: Female

DRUGS (8)
  1. ALENDRONIC ACID [Suspect]
     Active Substance: ALENDRONIC ACID
     Indication: VITAMIN D DECREASED
     Route: 048
     Dates: start: 201410
  2. OMEPRAZOLE. [Concomitant]
     Active Substance: OMEPRAZOLE
     Indication: PRODUCT USED FOR UNKNOWN INDICATION
     Route: 065
  3. CARBAMAZEPINE. [Suspect]
     Active Substance: CARBAMAZEPINE
     Indication: EPILEPSY
     Dosage: 400 MILLIGRAM DAILY; THIS CHANGED TO EPILIM.
     Route: 048
     Dates: start: 200703, end: 201605
  4. OLANZAPINE. [Suspect]
     Active Substance: OLANZAPINE
     Indication: DELUSIONAL DISORDER, UNSPECIFIED TYPE
     Route: 048
     Dates: start: 201009
  5. PREDNISOLONE. [Suspect]
     Active Substance: PREDNISOLONE
     Indication: NEURITIS
     Dosage: 10 MILLIGRAM DAILY;
     Route: 048
     Dates: start: 201605
  6. CITALOPRAM [Suspect]
     Active Substance: CITALOPRAM HYDROBROMIDE
     Indication: DEPRESSION
     Dosage: 20 MILLIGRAM DAILY;
     Route: 048
     Dates: start: 201009
  7. EPILIM [Suspect]
     Active Substance: VALPROATE SODIUM
     Indication: EPILEPSY
     Dosage: 1000 MILLIGRAM DAILY;
     Route: 048
     Dates: start: 201605
  8. SIMVASTATIN. [Concomitant]
     Active Substance: SIMVASTATIN
     Indication: PRODUCT USED FOR UNKNOWN INDICATION
     Dosage: UNK
     Route: 065
     Dates: start: 20120212

REACTIONS (4)
  - Pulmonary embolism [Fatal]
  - Deep vein thrombosis [Not Recovered/Not Resolved]
  - Malaise [Not Recovered/Not Resolved]
  - Pneumonia [Not Recovered/Not Resolved]

NARRATIVE: CASE EVENT DATE: 20160810
